FAERS Safety Report 8617933-2 (Version None)
Quarter: 2012Q3

REPORT INFORMATION
  Report Type: 
  Country: None (occurrence: None)
  Receive Date: 20120824
  Receipt Date: 20120306
  Transmission Date: 20120928
  Serious: No
  Sender: FDA-Public Use
  Company Number: US-ASTRAZENECA-2012SE16785

PATIENT
  Sex: Male

DRUGS (4)
  1. ALBUTEROL [Concomitant]
     Dosage: FOUR TIMES A DAY
  2. PULMICORT FLEXHALER [Suspect]
     Indication: CYSTIC FIBROSIS
     Route: 055
  3. SYMBICORT [Suspect]
     Indication: CYSTIC FIBROSIS
     Dosage: 2 PUFFS BID
     Route: 055
  4. IPRATROPIUM BROMIDE [Concomitant]

REACTIONS (2)
  - DYSPNOEA [None]
  - OFF LABEL USE [None]
